FAERS Safety Report 5061131-9 (Version None)
Quarter: 2006Q3

REPORT INFORMATION
  Report Type: 
  Country: None (occurrence: None)
  Receive Date: 20060720
  Receipt Date: 20060720
  Transmission Date: 20061208
  Serious: Yes (Hospitalization)
  Sender: FDA-Public Use
  Company Number: None

PATIENT
  Sex: Male
  Weight: 117 kg

DRUGS (2)
  1. ZOMETA [Suspect]
     Indication: PROSTATE CANCER
     Dosage: MG IV MONTHLY X6 DAYS  MONTHLY X 6 DAYS  IV
     Route: 042
     Dates: start: 20060330, end: 20060622
  2. LUPRON [Suspect]
     Indication: PROSTATE CANCER
     Dosage: 225MG  Q 3 MONTHS  SC
     Route: 058
     Dates: start: 20051031, end: 20060622

REACTIONS (1)
  - PNEUMONIA VIRAL [None]
